FAERS Safety Report 16802365 (Version 12)
Quarter: 2020Q3

REPORT INFORMATION
  Report Type: Report from Study
  Country: US (occurrence: US)
  Receive Date: 20190912
  Receipt Date: 20200814
  Transmission Date: 20201102
  Serious: Yes (Hospitalization)
  Sender: FDA-Public Use
  Company Number: US-ACTELION-A-NJ2019-194097

PATIENT
  Age: 64 Year
  Sex: Female
  Weight: 56.69 kg

DRUGS (7)
  1. CHLORHEXIDINE [Concomitant]
     Active Substance: CHLORHEXIDINE
  2. OPSUMIT [Suspect]
     Active Substance: MACITENTAN
     Indication: PULMONARY ARTERIAL HYPERTENSION
     Dosage: 10 MG, QD
     Route: 048
  3. REVATIO [Suspect]
     Active Substance: SILDENAFIL CITRATE
     Indication: PRODUCT USED FOR UNKNOWN INDICATION
     Route: 048
  4. VELETRI [Suspect]
     Active Substance: EPOPROSTENOL
     Indication: PULMONARY ARTERIAL HYPERTENSION
     Dosage: 35 NG/KG, PER MIN
     Route: 042
  5. VELETRI [Suspect]
     Active Substance: EPOPROSTENOL
     Dosage: 33 NG/KG, PER MIN
     Route: 042
  6. ORENITRAM [Concomitant]
     Active Substance: TREPROSTINIL
  7. VELETRI [Suspect]
     Active Substance: EPOPROSTENOL
     Dosage: 25 NG/KG, PER MIN
     Route: 042

REACTIONS (25)
  - Catheter site pain [Unknown]
  - Device related infection [Unknown]
  - Trichoglossia [Unknown]
  - Tongue eruption [Unknown]
  - Diarrhoea [Not Recovered/Not Resolved]
  - Headache [Unknown]
  - Dyspepsia [Unknown]
  - Weight decreased [Unknown]
  - Oxygen saturation decreased [Recovering/Resolving]
  - Suture related complication [Unknown]
  - Rash macular [Unknown]
  - Chills [Unknown]
  - Nasopharyngitis [Unknown]
  - Dry mouth [Unknown]
  - Tongue dry [Unknown]
  - Abdominal pain upper [Unknown]
  - Hospitalisation [Unknown]
  - Catheter site erythema [Unknown]
  - Fungal infection [Unknown]
  - Rash [Unknown]
  - Blood pressure systolic decreased [Unknown]
  - Throat irritation [Unknown]
  - Gastrointestinal motility disorder [Recovering/Resolving]
  - Constipation [Unknown]
  - Sudden onset of sleep [Unknown]

NARRATIVE: CASE EVENT DATE: 201908
